FAERS Safety Report 7997136-5 (Version None)
Quarter: 2011Q4

REPORT INFORMATION
  Report Type: 
  Country: None (occurrence: None)
  Receive Date: 20111221
  Receipt Date: 20111216
  Transmission Date: 20120403
  Serious: No
  Sender: FDA-Public Use
  Company Number: US-BAYER-2011-122099

PATIENT
  Age: 46 Year
  Sex: Female

DRUGS (1)
  1. MIRENA [Suspect]
     Indication: MENORRHAGIA
     Dosage: 20 MCG/DAY
     Route: 015
     Dates: start: 20111001

REACTIONS (4)
  - HEADACHE [None]
  - LIBIDO DECREASED [None]
  - ABDOMINAL DISTENSION [None]
  - PREMENSTRUAL SYNDROME [None]
